FAERS Safety Report 7859693-9 (Version None)
Quarter: 2011Q4

REPORT INFORMATION
  Report Type: 
  Country: None (occurrence: None)
  Receive Date: 20111027
  Receipt Date: 20111020
  Transmission Date: 20120403
  Serious: Yes (Other)
  Sender: FDA-Public Use
  Company Number: JP-JNJFOC-20111007144

PATIENT
  Age: 33 Year
  Sex: Female

DRUGS (2)
  1. ITRACONAZOLE [Suspect]
     Indication: ONYCHOMYCOSIS
     Route: 048
     Dates: start: 20110915, end: 20110922
  2. CONTRACEPTIVES [Concomitant]
     Indication: CONTRACEPTION
     Route: 065

REACTIONS (2)
  - EOSINOPHIL COUNT INCREASED [None]
  - OEDEMA [None]
